FAERS Safety Report 20345843 (Version 1)
Quarter: 2022Q1

REPORT INFORMATION
  Report Type: Spontaneous
  Country: US (occurrence: None)
  Receive Date: 20220115
  Receipt Date: 20220115
  Transmission Date: 20220424
  Serious: No
  Sender: FDA-Public Use
  Company Number: None

PATIENT
  Age: 69 Year
  Sex: Female
  Weight: 58.5 kg

DRUGS (1)
  1. ESTRADIOL [Suspect]
     Active Substance: ESTRADIOL
     Indication: Vulvovaginal dryness
     Dosage: OTHER QUANTITY : 1 VAGINAL CREAM;?FREQUENCY : TWICE A WEEK;?
     Route: 067

REACTIONS (4)
  - Vulvovaginal burning sensation [None]
  - Vulvovaginal pain [None]
  - Hypersensitivity [None]
  - Product substitution issue [None]

NARRATIVE: CASE EVENT DATE: 20211212
